FAERS Safety Report 7731731-3 (Version None)
Quarter: 2011Q3

REPORT INFORMATION
  Report Type: 
  Country: None (occurrence: None)
  Receive Date: 20110906
  Receipt Date: 20110628
  Transmission Date: 20111222
  Serious: No
  Sender: FDA-Public Use
  Company Number: US-AMGEN-USASP2011030471

PATIENT
  Sex: Female

DRUGS (13)
  1. LIPITOR [Concomitant]
  2. BENEFIBER                          /00677201/ [Concomitant]
  3. DIGOXIN [Concomitant]
  4. PREDNISONE [Concomitant]
  5. METOPROLOL [Concomitant]
  6. CITRACAL                           /00471001/ [Concomitant]
  7. XGEVA [Suspect]
     Indication: METASTASES TO BONE
     Dosage: 120 MG, Q4WK
     Dates: start: 20110201, end: 20110501
  8. WELCHOL [Concomitant]
  9. FOLIC ACID [Concomitant]
  10. ZOMETA [Concomitant]
  11. KLONOPIN [Concomitant]
  12. FASLODEX                           /01503001/ [Concomitant]
  13. LOVAZA [Concomitant]

REACTIONS (4)
  - FLATULENCE [None]
  - ABDOMINAL DISTENSION [None]
  - IRRITABLE BOWEL SYNDROME [None]
  - ALOPECIA [None]
